FAERS Safety Report 5528289-6 (Version None)
Quarter: 2007Q4

REPORT INFORMATION
  Report Type: 
  Country: None (occurrence: None)
  Receive Date: 20071128
  Receipt Date: 20071116
  Transmission Date: 20080405
  Serious: Yes (Hospitalization, Disabling, Other)
  Sender: FDA-Public Use
  Company Number: US-PFIZER INC-2007097756

PATIENT
  Sex: Female
  Weight: 95.454 kg

DRUGS (18)
  1. CHANTIX [Suspect]
     Indication: EX-SMOKER
     Dates: start: 20070201, end: 20070501
  2. METHYLPREDNISOLONE SODIUM SUCCINATE [Suspect]
     Indication: DYSPNOEA
     Route: 042
  3. METHYLPREDNISOLONE [Suspect]
     Indication: DYSPNOEA
  4. PREDNISONE TAB [Suspect]
  5. WARFARIN SODIUM [Suspect]
     Indication: ATRIAL FIBRILLATION
  6. LEVAQUIN [Suspect]
     Indication: BRONCHITIS
  7. TOPROL-XL [Concomitant]
  8. CELEBREX [Concomitant]
  9. SPIRIVA [Concomitant]
  10. VENTOLIN [Concomitant]
  11. ASMADEX [Concomitant]
  12. POTASSIUM CHLORIDE [Concomitant]
  13. LASIX [Concomitant]
  14. ELAVIL [Concomitant]
  15. LIPITOR [Concomitant]
  16. FOLIC ACID [Concomitant]
  17. ALL OTHER THERAPEUTIC PRODUCTS [Concomitant]
  18. DARVOCET [Concomitant]

REACTIONS (17)
  - ABDOMINAL DISTENSION [None]
  - APHAGIA [None]
  - ASTHENIA [None]
  - BRONCHITIS [None]
  - CONTUSION [None]
  - DYSPNOEA [None]
  - FATIGUE [None]
  - HAEMOGLOBIN DECREASED [None]
  - HAEMORRHAGE [None]
  - HIGH FREQUENCY ABLATION [None]
  - HYPERHIDROSIS [None]
  - HYPERSOMNIA [None]
  - MALAISE [None]
  - MENTAL IMPAIRMENT [None]
  - OXYGEN SATURATION DECREASED [None]
  - PULMONARY EMBOLISM [None]
  - WEIGHT INCREASED [None]
